FAERS Safety Report 26196534 (Version 1)
Quarter: 2025Q4

REPORT INFORMATION
  Report Type: Other
  Country: EU (occurrence: EU)
  Receive Date: 20251224
  Receipt Date: 20251224
  Transmission Date: 20260117
  Serious: Yes (Other)
  Sender: Integrated Therapeutic Solutions
  Company Number: EU-Integrated Therapeutic Solutions Inc.-2190429

PATIENT
  Age: 60 Year
  Sex: Male

DRUGS (1)
  1. PYLERA [Suspect]
     Active Substance: BISMUTH SUBCITRATE POTASSIUM\METRONIDAZOLE\TETRACYCLINE HYDROCHLORIDE
     Indication: Helicobacter infection
     Dates: start: 20231009, end: 20231019

REACTIONS (7)
  - Heat stroke [Recovered/Resolved]
  - Underdose [Unknown]
  - Faeces discoloured [Recovered/Resolved]
  - Dyskinesia [Recovered/Resolved]
  - Dizziness [Recovered/Resolved]
  - Migraine [Recovered/Resolved]
  - Memory impairment [Recovered/Resolved]

NARRATIVE: CASE EVENT DATE: 20231012
